FAERS Safety Report 24067434 (Version 1)
Quarter: 2024Q3

REPORT INFORMATION
  Report Type: Report from Study
  Country: ZA (occurrence: ZA)
  Receive Date: 20240709
  Receipt Date: 20240709
  Transmission Date: 20241016
  Serious: Yes (Death)
  Sender: ABBVIE
  Company Number: ZA-ABBVIE-5831338

PATIENT
  Sex: Male

DRUGS (2)
  1. BOTOX [Suspect]
     Active Substance: ONABOTULINUMTOXINA
     Indication: Muscle spasticity
     Dosage: TIME INTERVAL: AS NECESSARY: FREQUENCY: EVERY THREE WEEKS?FORM STRENGTH: 200 INTERNATIONAL UNIT
     Route: 065
     Dates: start: 20230126, end: 20230126
  2. BOTOX [Suspect]
     Active Substance: ONABOTULINUMTOXINA
     Indication: Muscle spasticity
     Dosage: TIME INTERVAL: AS NECESSARY: FREQUENCY: EVERY THREE WEEKS?FORM STRENGTH: 200 INTERNATIONAL UNIT
     Route: 065
     Dates: start: 20230420, end: 20230420

REACTIONS (1)
  - Death [Fatal]
